FAERS Safety Report 6504407-8 (Version None)
Quarter: 2009Q4

REPORT INFORMATION
  Report Type: 
  Country: None (occurrence: None)
  Receive Date: 20091215
  Receipt Date: 20091203
  Transmission Date: 20100525
  Serious: Yes (Hospitalization)
  Sender: FDA-Public Use
  Company Number: CLOF-1000705

PATIENT
  Sex: Female

DRUGS (6)
  1. CLOFARABINE (CLOFARABINE) TABLET [Suspect]
     Indication: MYELODYSPLASTIC SYNDROME
     Dosage: 20 MG, QD, ORAL
     Route: 048
     Dates: start: 20090829, end: 20090901
  2. LEVOTHYROXINE (LEVOTHYROXINE)Q [Concomitant]
  3. OMEPRAZOLE [Concomitant]
  4. REGLAN [Concomitant]
  5. ZOFRAN [Concomitant]
  6. LEVAQUIN [Concomitant]

REACTIONS (6)
  - ANAEMIA [None]
  - ASTHENIA [None]
  - CHEST DISCOMFORT [None]
  - CHEST PAIN [None]
  - DRUG DOSE OMISSION [None]
  - SYNCOPE [None]
